FAERS Safety Report 6535865-0 (Version None)
Quarter: 2010Q1

REPORT INFORMATION
  Report Type: 
  Country: None (occurrence: None)
  Receive Date: 20100106
  Receipt Date: 20091228
  Transmission Date: 20100710
  Serious: Yes (Hospitalization)
  Sender: FDA-Public Use
  Company Number: US021693

PATIENT
  Age: 65 Year
  Sex: Male
  Weight: 72 kg

DRUGS (14)
  1. TREANDA [Suspect]
     Indication: B-CELL LYMPHOMA
     Dosage: SEE IMAGE; DAYS1 +2 Q3 WEEKS
     Route: 042
     Dates: start: 20061101, end: 20070401
  2. TREANDA [Suspect]
     Indication: B-CELL LYMPHOMA
     Dosage: SEE IMAGE; DAYS1 +2 Q3 WEEKS
     Route: 042
     Dates: start: 20061114, end: 20070411
  3. DECADRON [Concomitant]
  4. ZOLOFT [Concomitant]
  5. TYLENOL [Concomitant]
  6. PERCOCET [Concomitant]
  7. PHENERGAN (PROMETHAZINE) [Concomitant]
  8. SIMETHICONE (SIMETICONE) [Concomitant]
  9. AMBIEN [Concomitant]
  10. TUCKS PAD (GLYCEROL, BENZALKONIUM CHLORIDE, HAMAMELIS VIRGINIANA) [Concomitant]
  11. XANAX [Concomitant]
  12. LOMOTIL [Concomitant]
  13. BENADRYL [Concomitant]
  14. IMODIUM [Concomitant]

REACTIONS (18)
  - ANAEMIA MACROCYTIC [None]
  - ASTHENIA [None]
  - BODY TEMPERATURE INCREASED [None]
  - DECUBITUS ULCER [None]
  - DIFFUSE AXONAL INJURY [None]
  - DRUG TOXICITY [None]
  - MENINGITIS [None]
  - MENTAL STATUS CHANGES [None]
  - METASTASES TO MENINGES [None]
  - MOBILITY DECREASED [None]
  - NEUROGENIC BLADDER [None]
  - NEUROPATHY PERIPHERAL [None]
  - PARAESTHESIA [None]
  - PARANEOPLASTIC SYNDROME [None]
  - REFUSAL OF TREATMENT BY PATIENT [None]
  - SPLENOMEGALY [None]
  - THROMBOCYTOPENIA [None]
  - TREMOR [None]
